FAERS Safety Report 21968536 (Version 1)
Quarter: 2023Q1

REPORT INFORMATION
  Report Type: Spontaneous
  Country: US (occurrence: None)
  Receive Date: 20230207
  Receipt Date: 20230207
  Transmission Date: 20230418
  Serious: Yes (Other)
  Sender: FDA-Public Use
  Company Number: None

PATIENT
  Age: 72 Year
  Sex: Female
  Weight: 74.7 kg

DRUGS (1)
  1. DEFINITY [Suspect]
     Active Substance: PERFLUTREN
     Indication: Atrial fibrillation
     Dosage: OTHER FREQUENCY : ONCE;?
     Route: 040
     Dates: start: 20221208, end: 20221208

REACTIONS (5)
  - Back pain [None]
  - Nervousness [None]
  - Malaise [None]
  - Headache [None]
  - Contrast media reaction [None]

NARRATIVE: CASE EVENT DATE: 20221208
